FAERS Safety Report 25466817 (Version 2)
Quarter: 2025Q3

REPORT INFORMATION
  Report Type: Spontaneous
  Country: PK (occurrence: PK)
  Receive Date: 20250623
  Receipt Date: 20250818
  Transmission Date: 20251020
  Serious: Yes (Other)
  Sender: AMGEN
  Company Number: PK-PFIZER INC-PV202500072679

PATIENT
  Age: 34 Year
  Sex: Male
  Weight: 75 kg

DRUGS (6)
  1. ENBREL [Suspect]
     Active Substance: ETANERCEPT
     Indication: Ankylosing spondylitis
     Dosage: 50 MG, WEEKLY
     Route: 058
     Dates: start: 202401
  2. PANADOL [Concomitant]
     Active Substance: ACETAMINOPHEN
     Route: 065
  3. Risek [Concomitant]
     Dosage: 40 MG, 1X/DAY (0+0+1+0, BEFORE MEAL)
     Route: 065
  4. DICLOFENAC SODIUM [Concomitant]
     Active Substance: DICLOFENAC SODIUM
     Route: 065
  5. DICLOFENAC SODIUM [Concomitant]
     Active Substance: DICLOFENAC SODIUM
  6. Kefentech [Concomitant]
     Route: 065

REACTIONS (1)
  - Osteonecrosis [Unknown]
